FAERS Safety Report 24130527 (Version 1)
Quarter: 2024Q3

REPORT INFORMATION
  Report Type: Report from Study
  Country: CA (occurrence: CA)
  Receive Date: 20240724
  Receipt Date: 20240724
  Transmission Date: 20241017
  Serious: Yes (Other)
  Sender: LEO PHARM
  Company Number: CA-LEO Pharma-371920

PATIENT
  Age: 49 Year
  Sex: Male

DRUGS (2)
  1. ADBRY [Suspect]
     Active Substance: TRALOKINUMAB-LDRM
     Indication: Dermatitis atopic
     Dosage: DOSAGE FORM AND STRENGTH: 150 MG/ML PRE-FILLED SYRINGE?LOADING DOSE
     Route: 058
     Dates: start: 20221230
  2. ADBRY [Suspect]
     Active Substance: TRALOKINUMAB-LDRM
     Indication: Dermatitis atopic
     Dosage: MAINTENANCE DOSE?DOSAGE FORM AND STRENGTH: 150 MG/ML PRE-FILLED SYRINGE
     Route: 058
     Dates: end: 202402

REACTIONS (2)
  - Periorbital cellulitis [Not Recovered/Not Resolved]
  - Conjunctivitis [Unknown]

NARRATIVE: CASE EVENT DATE: 20240201
